FAERS Safety Report 10658102 (Version 17)
Quarter: 2018Q1

REPORT INFORMATION
  Report Type: Report from Study
  Country: CA (occurrence: CA)
  Receive Date: 20141217
  Receipt Date: 20180116
  Transmission Date: 20180508
  Serious: Yes (Other)
  Sender: FDA-Public Use
  Company Number: PHHY2014CA092754

PATIENT
  Age: 64 Year
  Sex: Male

DRUGS (2)
  1. SANDOSTATIN LAR DEPOT [Suspect]
     Active Substance: OCTREOTIDE ACETATE
     Indication: NEUROENDOCRINE TUMOUR
     Dosage: 30 MG, QMO
     Route: 030
     Dates: start: 20140626
  2. SANDOSTATIN [Suspect]
     Active Substance: OCTREOTIDE ACETATE
     Indication: NEUROENDOCRINE TUMOUR
     Dosage: 50 UG, ONCE/SINGLE (TEST DOSE)
     Route: 058
     Dates: start: 20140616, end: 20140616

REACTIONS (26)
  - Blood pressure diastolic decreased [Unknown]
  - Body temperature decreased [Unknown]
  - Pain in extremity [Recovering/Resolving]
  - Dehydration [Unknown]
  - Spinal cord neoplasm [Unknown]
  - Pain [Unknown]
  - Blood pressure systolic increased [Unknown]
  - Dysstasia [Recovering/Resolving]
  - Eructation [Unknown]
  - Vomiting [Unknown]
  - Tumour pain [Recovering/Resolving]
  - Contusion [Unknown]
  - Constipation [Unknown]
  - Blood pressure increased [Unknown]
  - Rales [Unknown]
  - Chills [Recovering/Resolving]
  - Upper respiratory tract infection [Unknown]
  - Nausea [Unknown]
  - Urinary retention [Unknown]
  - Nervousness [Recovering/Resolving]
  - Blood creatinine increased [Unknown]
  - Fatigue [Unknown]
  - Arthralgia [Recovering/Resolving]
  - Blood glucose increased [Recovering/Resolving]
  - Back pain [Unknown]
  - Breath sounds [Unknown]

NARRATIVE: CASE EVENT DATE: 2014
